FAERS Safety Report 10602132 (Version 3)
Quarter: 2015Q1

REPORT INFORMATION
  Report Type: Spontaneous
  Country: JP (occurrence: JP)
  Receive Date: 20141124
  Receipt Date: 20150202
  Transmission Date: 20150720
  Serious: Yes (Life-Threatening, Hospitalization, Other)
  Sender: FDA-Public Use
  Company Number: JP-BRISTOL-MYERS SQUIBB COMPANY-21619614

PATIENT
  Age: 82 Year
  Sex: Male
  Weight: 44 kg

DRUGS (9)
  1. REZALTAS [Concomitant]
     Active Substance: AZELNIDIPINE\OLMESARTAN MEDOXOMIL
     Route: 065
  2. PROMAC                             /00024401/ [Concomitant]
     Active Substance: NITROFURANTOIN
     Route: 065
  3. WARFARIN [Concomitant]
     Active Substance: WARFARIN
     Route: 065
  4. ONGLYZA [Suspect]
     Active Substance: SAXAGLIPTIN HYDROCHLORIDE
     Indication: TYPE 2 DIABETES MELLITUS
     Dosage: 5 MG, QD
     Route: 048
  5. PLETAAL [Concomitant]
     Active Substance: CILOSTAZOL
     Route: 065
  6. MAGLAX [Concomitant]
     Active Substance: MAGNESIUM OXIDE
     Route: 065
  7. HUMALOG MIX [Suspect]
     Active Substance: INSULIN LISPRO
     Indication: TYPE 2 DIABETES MELLITUS
     Dosage: 22 DF, UNK
     Route: 058
     Dates: end: 20140525
  8. ARICEPT [Concomitant]
     Active Substance: DONEPEZIL HYDROCHLORIDE
     Route: 065
  9. PROTERNOL S [Concomitant]
     Route: 065

REACTIONS (6)
  - Hypoglycaemic coma [Recovered/Resolved]
  - Sepsis [Unknown]
  - Cardiac failure acute [Recovered/Resolved]
  - Pneumonia aspiration [Unknown]
  - Glycosylated haemoglobin increased [Unknown]
  - Cardiomyopathy [Recovered/Resolved]

NARRATIVE: CASE EVENT DATE: 20140524
